FAERS Safety Report 4477415-9 (Version None)
Quarter: 2004Q4

REPORT INFORMATION
  Report Type: 
  Country: None (occurrence: None)
  Receive Date: 20041013
  Receipt Date: 20041005
  Transmission Date: 20050328
  Serious: Yes (Hospitalization)
  Sender: FDA-Public Use
  Company Number: 2004-10-0091

PATIENT
  Age: 39 Year
  Sex: Male

DRUGS (2)
  1. REBETOL [Suspect]
     Indication: HEPATITIS C
     Dosage: 1G-600 MG*QD ORAL
     Route: 048
     Dates: start: 20030916
  2. PEGASYS [Suspect]
     Indication: HEPATITIS C
     Dosage: 180-135*MCG.W SUBCUTANEO
     Route: 058
     Dates: start: 20030916

REACTIONS (1)
  - PANCYTOPENIA [None]
